FAERS Safety Report 9628579 (Version 1)
Quarter: 2013Q4

REPORT INFORMATION
  Report Type: Spontaneous
  Country: US (occurrence: US)
  Receive Date: 20131017
  Receipt Date: 20131017
  Transmission Date: 20140711
  Serious: No
  Sender: FDA-Public Use
  Company Number: US-TEVA-438210USA

PATIENT
  Age: 23 Year
  Sex: Female
  Weight: 71.73 kg

DRUGS (4)
  1. PARAGARD 380A [Suspect]
     Indication: CONTRACEPTION
     Route: 015
     Dates: end: 20130920
  2. PARAGARD 380A [Suspect]
     Route: 015
     Dates: start: 20130923
  3. VALIUM [Concomitant]
  4. TYLENOL [Concomitant]

REACTIONS (1)
  - Device expulsion [Recovered/Resolved]
